FAERS Safety Report 8409348-7 (Version None)
Quarter: 2012Q2

REPORT INFORMATION
  Report Type: 
  Country: None (occurrence: None)
  Receive Date: 20120605
  Receipt Date: 20120530
  Transmission Date: 20120825
  Serious: No
  Sender: FDA-Public Use
  Company Number: US-BIOGENIDEC-2012BI015052

PATIENT
  Age: 58 Year
  Sex: Female

DRUGS (1)
  1. TYSABRI [Suspect]
     Indication: MULTIPLE SCLEROSIS
     Route: 042
     Dates: start: 20120217, end: 20120413

REACTIONS (8)
  - DYSPNOEA [None]
  - CHILLS [None]
  - CHOKING SENSATION [None]
  - HYPERSENSITIVITY [None]
  - TREMOR [None]
  - MUSCLE SPASMS [None]
  - FLUSHING [None]
  - MUSCLE TWITCHING [None]
